FAERS Safety Report 20371283 (Version 3)
Quarter: 2022Q1

REPORT INFORMATION
  Report Type: Spontaneous
  Country: GR (occurrence: GR)
  Receive Date: 20220124
  Receipt Date: 20220303
  Transmission Date: 20220423
  Serious: Yes (Life-Threatening, Other)
  Sender: FDA-Public Use
  Company Number: GR-PFIZER INC-202101589854

PATIENT
  Age: 36 Year
  Sex: Male

DRUGS (1)
  1. ZOLOFT [Suspect]
     Active Substance: SERTRALINE HYDROCHLORIDE
     Indication: Depression
     Dosage: FROM ABOUT 2017 OR 18
     Route: 048

REACTIONS (29)
  - Drug ineffective [Unknown]
  - Suicidal ideation [Unknown]
  - Panic attack [Unknown]
  - Depersonalisation/derealisation disorder [Unknown]
  - Dizziness [Unknown]
  - Disturbance in attention [Unknown]
  - Dyspnoea [Unknown]
  - Discomfort [Unknown]
  - Asthenia [Unknown]
  - General physical health deterioration [Unknown]
  - Anxiety [Unknown]
  - Respiratory failure [Unknown]
  - Drug dependence [Unknown]
  - Hypoaesthesia [Unknown]
  - Chills [Unknown]
  - Somnolence [Unknown]
  - Abnormal dreams [Unknown]
  - Tachycardia [Unknown]
  - Nightmare [Unknown]
  - Poor quality sleep [Unknown]
  - Anger [Unknown]
  - Head injury [Unknown]
  - Fall [Unknown]
  - Vertigo [Unknown]
  - Impaired driving ability [Unknown]
  - Tremor [Unknown]
  - Feeling abnormal [Unknown]
  - Aggression [Unknown]
  - Gait disturbance [Unknown]
